FAERS Safety Report 5412281-6 (Version None)
Quarter: 2007Q3

REPORT INFORMATION
  Report Type: 
  Country: None (occurrence: None)
  Receive Date: 20070810
  Receipt Date: 20070810
  Transmission Date: 20080115
  Serious: Yes (Life-Threatening, Other)
  Sender: FDA-Public Use
  Company Number: None

PATIENT
  Age: 32 Year
  Sex: Male
  Weight: 68.0396 kg

DRUGS (1)
  1. AVELOX [Suspect]
     Indication: BRONCHITIS
     Dosage: 400 MG DAILY PO   5 DOSES
     Route: 048
     Dates: start: 20070720, end: 20070724

REACTIONS (11)
  - ABDOMINAL PAIN [None]
  - CHILLS [None]
  - CLOSTRIDIUM DIFFICILE TOXIN TEST POSITIVE [None]
  - DIARRHOEA [None]
  - MALAISE [None]
  - MUCOUS STOOLS [None]
  - NAUSEA [None]
  - NIGHT SWEATS [None]
  - ORAL INTAKE REDUCED [None]
  - PYREXIA [None]
  - WHITE BLOOD CELL COUNT INCREASED [None]
